FAERS Safety Report 12849623 (Version 1)
Quarter: 2016Q4

REPORT INFORMATION
  Report Type: Spontaneous
  Country: US (occurrence: US)
  Receive Date: 20161014
  Receipt Date: 20161014
  Transmission Date: 20170207
  Serious: Yes (Death, Hospitalization, Other)
  Sender: FDA-Public Use
  Company Number: US-TEVA-702812USA

PATIENT
  Sex: Male

DRUGS (1)
  1. DILTIAZEM. [Suspect]
     Active Substance: DILTIAZEM

REACTIONS (4)
  - Malaise [Unknown]
  - Constipation [Unknown]
  - Emphysema [Unknown]
  - Death [Fatal]

NARRATIVE: CASE EVENT DATE: 20151219
